FAERS Safety Report 5663465-3 (Version None)
Quarter: 2008Q1

REPORT INFORMATION
  Report Type: 
  Country: None (occurrence: None)
  Receive Date: 20080313
  Receipt Date: 20080304
  Transmission Date: 20080703
  Serious: Yes (Hospitalization)
  Sender: FDA-Public Use
  Company Number: US-ABBOTT-08P-163-0440736-00

PATIENT
  Sex: Female
  Weight: 81.266 kg

DRUGS (8)
  1. RITONAVIR SOFT GELATIN CAPSULES [Suspect]
     Indication: HIV INFECTION
     Route: 048
  2. PREZISTA (DARUNAVIR) [Concomitant]
     Indication: HIV INFECTION
     Route: 048
     Dates: start: 20070710, end: 20070807
  3. TMC125 [Concomitant]
     Indication: HIV INFECTION
     Route: 048
  4. DOXAZOSIN MESYLATE [Concomitant]
     Indication: HYPERTENSION
     Route: 048
     Dates: start: 20070710
  5. PRINZIDE [Concomitant]
     Indication: HYPERTENSION
     Route: 048
     Dates: start: 20070515
  6. IBUPROFEN [Concomitant]
     Indication: HEADACHE
     Route: 048
     Dates: start: 20070430
  7. SERTRALINE HYDROCHLORIDE [Concomitant]
     Indication: DEPRESSION
     Route: 048
     Dates: start: 20070214
  8. SERETIDE [Concomitant]
     Indication: ASTHMA
     Route: 055
     Dates: start: 20070214

REACTIONS (2)
  - CONVERSION DISORDER [None]
  - DEPRESSION [None]
